FAERS Safety Report 7423060-2 (Version None)
Quarter: 2011Q2

REPORT INFORMATION
  Report Type: 
  Country: None (occurrence: None)
  Receive Date: 20110419
  Receipt Date: 20110414
  Transmission Date: 20111010
  Serious: Yes (Death)
  Sender: FDA-Public Use
  Company Number: DE-ELI_LILLY_AND_COMPANY-DE201103001461

PATIENT
  Age: 72 Year
  Sex: Male

DRUGS (5)
  1. CORDINATE PLUS [Concomitant]
  2. IBUPROFEN [Concomitant]
     Dosage: UNK, UNK
  3. CIALIS [Suspect]
     Indication: ERECTILE DYSFUNCTION
     Dosage: 20 MG, AS NEEDED
     Route: 048
     Dates: start: 20050101
  4. ASPIRIN [Concomitant]
     Dosage: 100 MG, UNK
  5. RANITIDINE [Concomitant]
     Dosage: 300 MG, AS NEEDED

REACTIONS (1)
  - DEATH [None]
